FAERS Safety Report 18359384 (Version 1)
Quarter: 2020Q4

REPORT INFORMATION
  Report Type: Spontaneous
  Country: US (occurrence: US)
  Receive Date: 20201007
  Receipt Date: 20201007
  Transmission Date: 20210114
  Serious: Yes (Hospitalization)
  Sender: FDA-Public Use
  Company Number: None

PATIENT
  Age: 62 Year
  Sex: Male
  Weight: 101.4 kg

DRUGS (2)
  1. ABIRATERONE ACETATE (748121) [Suspect]
     Active Substance: ABIRATERONE ACETATE
     Dates: end: 20200913
  2. PREDNISONE. [Suspect]
     Active Substance: PREDNISONE
     Dates: end: 20200913

REACTIONS (3)
  - Hypertension [None]
  - Gastrointestinal haemorrhage [None]
  - Chest pain [None]

NARRATIVE: CASE EVENT DATE: 20200914
